FAERS Safety Report 11989438 (Version 2)
Quarter: 2016Q1

REPORT INFORMATION
  Report Type: Spontaneous
  Country: US (occurrence: US)
  Receive Date: 20160202
  Receipt Date: 20160211
  Transmission Date: 20160526
  Serious: Yes (Life-Threatening, Hospitalization, Other)
  Sender: FDA-Public Use
  Company Number: US-009507513-1602USA001334

PATIENT
  Sex: Male
  Weight: 113.38 kg

DRUGS (3)
  1. JANUVIA [Suspect]
     Active Substance: SITAGLIPTIN PHOSPHATE
     Indication: TYPE 2 DIABETES MELLITUS
     Dosage: 100 MG, ONCE DAILY
     Route: 048
     Dates: start: 20110126, end: 20110225
  2. VICTOZA [Suspect]
     Active Substance: LIRAGLUTIDE
     Indication: TYPE 2 DIABETES MELLITUS
     Dosage: 18 MICROGRAM, ONCE DAILY
     Dates: start: 20130118, end: 20131228
  3. TRADJENTA [Suspect]
     Active Substance: LINAGLIPTIN
     Indication: TYPE 2 DIABETES MELLITUS
     Dosage: 5 MG, ONCE DAILY
     Dates: start: 20130104, end: 20130203

REACTIONS (10)
  - Renal mass [Unknown]
  - Ductal adenocarcinoma of pancreas [Unknown]
  - Acinar cell carcinoma of pancreas [Unknown]
  - Surgery [Unknown]
  - Renal cyst [Unknown]
  - Pericardial effusion [Unknown]
  - Prostatomegaly [Unknown]
  - Hepatic steatosis [Unknown]
  - Splenic lesion [Unknown]
  - Thyroid mass [Unknown]

NARRATIVE: CASE EVENT DATE: 20140528
